FAERS Safety Report 15707889 (Version 1)
Quarter: 2018Q4

REPORT INFORMATION
  Report Type: Report from Study
  Country: DE (occurrence: DE)
  Receive Date: 20181211
  Receipt Date: 20181211
  Transmission Date: 20190205
  Serious: Yes (Other)
  Sender: FDA-Public Use
  Company Number: DE-AMGEN-DEUNI2018174735

PATIENT
  Age: 57 Year
  Sex: Female
  Weight: 84 kg

DRUGS (8)
  1. PANITUMUMAB [Suspect]
     Active Substance: PANITUMUMAB
     Dosage: 456 MG, UNK
     Route: 042
     Dates: start: 20180313
  2. FOLINIC ACID [Suspect]
     Active Substance: LEUCOVORIN
     Dosage: 340 MG, UNK
     Route: 065
     Dates: start: 20180410
  3. FOLINIC ACID [Suspect]
     Active Substance: LEUCOVORIN
     Indication: COLORECTAL CANCER METASTATIC
     Dosage: 378 MG, UNK
     Route: 065
     Dates: start: 20180116
  4. FLUOROURACIL. [Suspect]
     Active Substance: FLUOROURACIL
     Indication: COLORECTAL CANCER METASTATIC
     Dosage: 756 MG, UNK
     Route: 040
     Dates: start: 20180116
  5. FLUOROURACIL. [Suspect]
     Active Substance: FLUOROURACIL
     Dosage: 4536 MG, UNK
     Route: 042
     Dates: start: 20180116
  6. IRINOTECAN [Suspect]
     Active Substance: IRINOTECAN
     Indication: COLORECTAL CANCER METASTATIC
     Dosage: 340 MG, UNK
     Route: 065
     Dates: start: 20180116
  7. FOLINIC ACID [Suspect]
     Active Substance: LEUCOVORIN
     Dosage: 378 MG, UNK
     Route: 065
     Dates: start: 20180424
  8. PANITUMUMAB [Suspect]
     Active Substance: PANITUMUMAB
     Indication: COLORECTAL CANCER METASTATIC
     Dosage: 462 MG, UNK
     Route: 042
     Dates: start: 20180116

REACTIONS (3)
  - Rash pustular [Recovered/Resolved]
  - Pruritus [Recovered/Resolved]
  - Acute polyneuropathy [Recovered/Resolved]

NARRATIVE: CASE EVENT DATE: 20180227
